FAERS Safety Report 7990760-5 (Version None)
Quarter: 2011Q4

REPORT INFORMATION
  Report Type: 
  Country: None (occurrence: None)
  Receive Date: 20111219
  Receipt Date: 20111219
  Transmission Date: 20120403
  Serious: Yes (Hospitalization, Other)
  Sender: FDA-Public Use
  Company Number: None

PATIENT
  Age: 61 Year
  Sex: Female
  Weight: 65.77 kg

DRUGS (2)
  1. MAXZIDE [Concomitant]
  2. BENICAR [Suspect]
     Indication: HYPERTENSION
     Dates: start: 20111110, end: 20111116

REACTIONS (6)
  - ANGIOEDEMA [None]
  - LIP SWELLING [None]
  - MEMORY IMPAIRMENT [None]
  - BLOOD PRESSURE DECREASED [None]
  - MYALGIA [None]
  - CONVULSION [None]
